FAERS Safety Report 23369887 (Version 1)
Quarter: 2024Q1

REPORT INFORMATION
  Report Type: Spontaneous
  Country: CA (occurrence: CA)
  Receive Date: 20240105
  Receipt Date: 20240105
  Transmission Date: 20240410
  Serious: Yes (Other)
  Sender: FDA-Public Use
  Company Number: CA-BAYER-2024A000399

PATIENT
  Sex: Female

DRUGS (4)
  1. EYLEA [Suspect]
     Active Substance: AFLIBERCEPT
     Indication: Diabetic retinal oedema
     Dosage: UNK, Q4WK, SOLUTION FOR INJECTION, 40MG/ML
     Route: 031
  2. SIMVASTATIN [Suspect]
     Active Substance: SIMVASTATIN
     Indication: Diabetic retinal oedema
     Dosage: UNK UNK, Q4WK
  3. SIMVASTATIN [Suspect]
     Active Substance: SIMVASTATIN
     Dosage: UNK , Q4WK
  4. TRIESENCE [Suspect]
     Active Substance: TRIAMCINOLONE ACETONIDE
     Indication: Diabetic retinal oedema

REACTIONS (3)
  - Visual impairment [Unknown]
  - Macular oedema [Unknown]
  - Drug ineffective [Unknown]
